FAERS Safety Report 11615903 (Version 3)
Quarter: 2015Q4

REPORT INFORMATION
  Report Type: Spontaneous
  Country: US (occurrence: US)
  Receive Date: 20151009
  Receipt Date: 20151231
  Transmission Date: 20160304
  Serious: Yes (Death)
  Sender: FDA-Public Use
  Company Number: US-CELGENE-USA-2015100216

PATIENT
  Age: 70 Year
  Sex: Male

DRUGS (2)
  1. REVLIMID [Suspect]
     Active Substance: LENALIDOMIDE
     Indication: LUNG NEOPLASM MALIGNANT
  2. REVLIMID [Suspect]
     Active Substance: LENALIDOMIDE
     Indication: MYELODYSPLASTIC SYNDROME
     Dosage: 5 MILLIGRAM
     Route: 048
     Dates: start: 20150819, end: 2015

REACTIONS (3)
  - Pneumonia [Fatal]
  - Cardiac failure congestive [Fatal]
  - Chronic kidney disease [Fatal]

NARRATIVE: CASE EVENT DATE: 20150926
